FAERS Safety Report 4649683-1 (Version None)
Quarter: 2005Q2

REPORT INFORMATION
  Report Type: 
  Country: None (occurrence: None)
  Receive Date: 20050502
  Receipt Date: 20050422
  Transmission Date: 20051028
  Serious: Yes (Hospitalization)
  Sender: FDA-Public Use
  Company Number: 200511424FR

PATIENT
  Age: 75 Year
  Sex: Female

DRUGS (17)
  1. FLAGYL [Suspect]
     Indication: GASTROENTERITIS
     Route: 048
     Dates: start: 20041230, end: 20050106
  2. ERCEFURYL [Concomitant]
     Indication: GASTROENTERITIS
     Route: 048
     Dates: start: 20041227, end: 20050103
  3. IMODIUM [Concomitant]
     Indication: GASTROENTERITIS
     Route: 048
     Dates: start: 20041227, end: 20050103
  4. SMECTA [Concomitant]
     Indication: GASTROENTERITIS
     Route: 048
     Dates: start: 20041230, end: 20050106
  5. PREVISCAN [Concomitant]
  6. ASPEGIC 1000 [Concomitant]
     Route: 048
  7. ALDALIX [Concomitant]
  8. LASILIX [Concomitant]
  9. CORDARONE [Concomitant]
  10. DIGOXIN [Concomitant]
  11. NOOTROPYL [Concomitant]
  12. LEXOMIL [Concomitant]
  13. DAFLON [Concomitant]
  14. OPATANOL                                /IRE/ [Concomitant]
     Route: 001
     Dates: start: 20041101
  15. HEPARIN [Concomitant]
     Indication: CEREBROVASCULAR ACCIDENT
  16. CARBOLEVURE [Concomitant]
     Indication: GASTROENTERITIS
  17. VIT K ANTAGONISTS [Concomitant]
     Indication: CEREBROVASCULAR ACCIDENT

REACTIONS (5)
  - ECCHYMOSIS [None]
  - EPISTAXIS [None]
  - MOUTH HAEMORRHAGE [None]
  - THROMBOCYTOPENIA [None]
  - THROMBOCYTOPENIC PURPURA [None]
